FAERS Safety Report 6073989-5 (Version None)
Quarter: 2009Q1

REPORT INFORMATION
  Report Type: 
  Country: None (occurrence: None)
  Receive Date: 20090121
  Receipt Date: 20080201
  Transmission Date: 20090719
  Serious: Yes (Other)
  Sender: FDA-Public Use
  Company Number: HQWYE299421JUL04

PATIENT
  Age: 61 Year
  Sex: Female

DRUGS (1)
  1. PREMPRO [Suspect]
     Indication: HORMONE REPLACEMENT THERAPY
     Dates: start: 19980101, end: 20010701

REACTIONS (2)
  - DEEP VEIN THROMBOSIS [None]
  - PULMONARY INFARCTION [None]
